FAERS Safety Report 13405010 (Version 1)
Quarter: 2017Q2

REPORT INFORMATION
  Report Type: Spontaneous
  Country: US (occurrence: US)
  Receive Date: 20170405
  Receipt Date: 20170405
  Transmission Date: 20170830
  Serious: Yes (Hospitalization)
  Sender: FDA-Public Use
  Company Number: US-ASTRAZENECA-2017SE33649

PATIENT
  Sex: Male

DRUGS (1)
  1. SYMBICORT [Suspect]
     Active Substance: BUDESONIDE\FORMOTEROL FUMARATE DIHYDRATE
     Route: 055
     Dates: start: 20161201

REACTIONS (15)
  - Interstitial lung disease [Unknown]
  - Off label use [Unknown]
  - Pulmonary fibrosis [Unknown]
  - Infection [Unknown]
  - Osteopenia [Unknown]
  - Headache [Unknown]
  - Product use in unapproved indication [Unknown]
  - Abdominal discomfort [Unknown]
  - Adrenal insufficiency [Unknown]
  - Asthenia [Not Recovered/Not Resolved]
  - Lung disorder [Unknown]
  - Back pain [Unknown]
  - Immune system disorder [Unknown]
  - Pneumonia [Unknown]
  - Cataract [Unknown]
